FAERS Safety Report 13348835 (Version 1)
Quarter: 2017Q1

REPORT INFORMATION
  Report Type: Spontaneous
  Country: US (occurrence: US)
  Receive Date: 20170320
  Receipt Date: 20170320
  Transmission Date: 20170428
  Serious: No
  Sender: FDA-Public Use
  Company Number: US-TEVA-684646USA

PATIENT
  Age: 72 Year
  Sex: Female
  Weight: 79.45 kg

DRUGS (14)
  1. MULTIVITAMIN [Concomitant]
     Active Substance: VITAMINS
  2. DOXOPIN [Concomitant]
     Dosage: 90 MILLIGRAM DAILY;
  3. TEMOZOLOMIDE. [Suspect]
     Active Substance: TEMOZOLOMIDE
     Indication: HEPATIC CANCER
  4. CAPECITABINE. [Suspect]
     Active Substance: CAPECITABINE
     Dosage: 3 AFTER BREAKFAST, 3 AFTER DINNER.
     Route: 065
     Dates: start: 20160622
  5. MAGNESIUM [Concomitant]
     Active Substance: MAGNESIUM
  6. VITAMIN D3 [Concomitant]
     Active Substance: CHOLECALCIFEROL
  7. ESTRADIOL. [Concomitant]
     Active Substance: ESTRADIOL
     Dosage: 1 MILLIGRAM DAILY;
  8. OMEPRAZOLE. [Concomitant]
     Active Substance: OMEPRAZOLE
     Dosage: AM
  9. VITAMIN C [Concomitant]
     Active Substance: ASCORBIC ACID
  10. GABAPENTIN. [Concomitant]
     Active Substance: GABAPENTIN
     Dosage: 4800 MILLIGRAM DAILY;
  11. DIAZEPAM. [Concomitant]
     Active Substance: DIAZEPAM
  12. VITAMIN B12 [Concomitant]
     Active Substance: CYANOCOBALAMIN
  13. BACLOFEN. [Concomitant]
     Active Substance: BACLOFEN
  14. ZOLPIDEM CR [Concomitant]
     Active Substance: ZOLPIDEM TARTRATE

REACTIONS (4)
  - Nausea [Unknown]
  - Throat irritation [Recovered/Resolved]
  - Vomiting [Recovered/Resolved]
  - Oesophageal pain [Recovered/Resolved]

NARRATIVE: CASE EVENT DATE: 20160731
